FAERS Safety Report 7246493-6 (Version None)
Quarter: 2011Q1

REPORT INFORMATION
  Report Type: 
  Country: None (occurrence: None)
  Receive Date: 20110126
  Receipt Date: 20110119
  Transmission Date: 20110831
  Serious: Yes (Hospitalization)
  Sender: FDA-Public Use
  Company Number: JP-SANOFI-AVENTIS-2010SA066119

PATIENT
  Sex: Male
  Weight: 67 kg

DRUGS (22)
  1. METFORMIN HYDROCHLORIDE [Concomitant]
     Indication: DIABETES MELLITUS
     Route: 048
     Dates: start: 20090226
  2. ENALAPRIL [Concomitant]
     Route: 048
     Dates: start: 20090226
  3. ALOSENN [Concomitant]
     Indication: CONSTIPATION
     Route: 048
     Dates: start: 20090226
  4. GLIBENCLAMIDE [Concomitant]
     Route: 048
     Dates: start: 20100226
  5. FAMOTIDINE [Concomitant]
     Route: 048
     Dates: start: 20100226
  6. AMLODIPINE BESYLATE [Concomitant]
     Indication: HYPERTENSION
     Route: 048
     Dates: start: 20090226
  7. BLINDED THERAPY [Suspect]
     Route: 048
     Dates: start: 20091224, end: 20100318
  8. FELBINAC [Concomitant]
     Route: 062
     Dates: start: 20100318
  9. LAXOBERON [Concomitant]
     Indication: CONSTIPATION
     Dates: start: 20101102
  10. CILOSTAZOL [Concomitant]
     Indication: THROMBOSIS PROPHYLAXIS
     Route: 048
     Dates: start: 20090807, end: 20101029
  11. TAMBOCOR [Concomitant]
     Indication: ARRHYTHMIA
     Route: 048
     Dates: start: 20101111
  12. CLOPIDOGREL BISULFATE [Suspect]
     Route: 048
     Dates: start: 20100319, end: 20101029
  13. ATORVASTATIN CALCIUM [Concomitant]
     Route: 048
     Dates: start: 20090226
  14. OMEPRAL [Concomitant]
     Indication: GASTRIC HAEMORRHAGE
     Dates: start: 20101102
  15. FUROSEMIDE [Concomitant]
     Indication: CARDIAC FAILURE CONGESTIVE
     Route: 048
     Dates: start: 20091119
  16. SPIRONOLACTONE [Concomitant]
     Indication: CARDIAC FAILURE CONGESTIVE
     Route: 048
     Dates: start: 20091119
  17. EPINASTINE HYDROCHLORIDE [Concomitant]
     Route: 048
     Dates: start: 20100210
  18. HUMALIN [Concomitant]
     Indication: DIABETES MELLITUS
     Route: 058
     Dates: start: 20101102
  19. SODIUM PICOSULFATE [Concomitant]
  20. PIOGLITAZONE HYDROCHLORIDE [Concomitant]
     Route: 048
     Dates: start: 20090226
  21. HYDROCORTISONE BUTYRATE [Concomitant]
     Indication: DERMATITIS
     Route: 062
     Dates: start: 20100210
  22. MAGNESIUM OXIDE HEAVY [Concomitant]
     Indication: CONSTIPATION
     Route: 048
     Dates: start: 20100514

REACTIONS (3)
  - GASTRIC CANCER [None]
  - LARGE INTESTINE CARCINOMA [None]
  - GASTROINTESTINAL HAEMORRHAGE [None]
